FAERS Safety Report 7922709 (Version 4)
Quarter: 2014Q2

REPORT INFORMATION
  Report Type: Spontaneous
  Country: US (occurrence: US)
  Receive Date: 20110429
  Receipt Date: 20140624
  Transmission Date: 20141212
  Serious: No
  Sender: FDA-Public Use
  Company Number: US-ASTRAZENECA-2010SE13536

PATIENT
  Age: 60 Year
  Sex: Male

DRUGS (22)
  1. NEXIUM [Suspect]
     Indication: GASTROOESOPHAGEAL REFLUX DISEASE
     Route: 048
  2. NEXIUM [Suspect]
     Indication: BARRETT^S OESOPHAGUS
     Route: 048
  3. NEXIUM [Suspect]
     Indication: GASTROOESOPHAGEAL REFLUX DISEASE
     Route: 048
  4. NEXIUM [Suspect]
     Indication: GASTROOESOPHAGEAL REFLUX DISEASE
     Route: 048
     Dates: start: 20111005
  5. NEXIUM [Suspect]
     Indication: BARRETT^S OESOPHAGUS
     Route: 048
     Dates: start: 20111005
  6. NEXIUM [Suspect]
     Indication: GASTROOESOPHAGEAL REFLUX DISEASE
     Route: 048
     Dates: start: 20111005
  7. TOPROL XL [Concomitant]
  8. RHINOCORT AQUA [Concomitant]
  9. ATIVAN [Concomitant]
     Indication: ANXIETY
  10. DOLOPHINE [Concomitant]
  11. PRIVINIL [Concomitant]
  12. AMBIEN [Concomitant]
     Indication: SLEEP DISORDER
  13. LIPITOR [Concomitant]
  14. ANDROGEL [Concomitant]
  15. LOPRESSOR [Concomitant]
  16. AMLODIPIN/NORVASC [Concomitant]
  17. ALLOPURINOL/ZYLOPRIM [Concomitant]
  18. NAPROSYN [Concomitant]
  19. NITROSTAT [Concomitant]
     Indication: CHEST PAIN
  20. ASPIRIN [Concomitant]
  21. VITAMIN C [Concomitant]
  22. ZESTRIL [Concomitant]

REACTIONS (11)
  - Gastrooesophageal reflux disease [Unknown]
  - Anxiety disorder [Unknown]
  - Barrett^s oesophagus [Unknown]
  - Abdominal pain upper [Unknown]
  - Vomiting [Unknown]
  - Gastric disorder [Unknown]
  - Malaise [Unknown]
  - Sleep disorder [Unknown]
  - Off label use [Unknown]
  - Intentional product misuse [Unknown]
  - Intentional product misuse [Unknown]
